FAERS Safety Report 20839699 (Version 1)
Quarter: 2022Q2

REPORT INFORMATION
  Report Type: Spontaneous
  Country: US (occurrence: US)
  Receive Date: 20220517
  Receipt Date: 20220517
  Transmission Date: 20220721
  Serious: No
  Sender: FDA-Public Use
  Company Number: US-PFIZER INC-202200695699

PATIENT
  Age: 68 Year
  Sex: Female
  Weight: 65.77 kg

DRUGS (10)
  1. PAXLOVID [Suspect]
     Active Substance: NIRMATRELVIR\RITONAVIR
     Indication: COVID-19 treatment
     Dosage: 3 TABLETS TWICE A DAY BY MOUTH, IN THE MORNING AND EVENING)
     Dates: start: 20220510
  2. PAXLOVID [Suspect]
     Active Substance: NIRMATRELVIR\RITONAVIR
     Indication: Oropharyngeal pain
  3. ATORVASTATIN [Concomitant]
     Active Substance: ATORVASTATIN
     Indication: Blood cholesterol increased
     Dosage: 10 MG, 1X/DAY
     Route: 048
  4. OLMESARTAN MEDOXOMIL [Concomitant]
     Active Substance: OLMESARTAN MEDOXOMIL
     Indication: Hypertension
     Dosage: 5 MG, 1X/DAY
     Route: 048
  5. LEVOTHYROXINE [Concomitant]
     Active Substance: LEVOTHYROXINE
     Indication: Hypothyroidism
     Dosage: 75MCG 5 DAYS A WEEK AND 2 DAYS A WEEK SHE TAKES 50MCG
     Route: 048
  6. LEVOTHYROXINE [Concomitant]
     Active Substance: LEVOTHYROXINE
     Dosage: 2 DAYS A WEEK SHE TAKES 50MCG
     Route: 048
  7. VITAMIN D NOS [Concomitant]
     Active Substance: VITAMIN D NOS
     Indication: Vitamin D decreased
     Dosage: 400 IU, DAILY
     Route: 048
  8. COENZYME Q10 [Concomitant]
     Active Substance: DIETARY SUPPLEMENT\UBIDECARENONE
     Indication: Memory impairment
     Dosage: 1 DF (1 TABLET BY MOUTH)
     Route: 048
  9. VITAMIN B12 [Concomitant]
     Active Substance: CYANOCOBALAMIN
     Indication: Vitamin B12 decreased
     Dosage: 1 DF(1 TABLETS 3 TIMES A WEEK BY MOUTH)
     Route: 048
  10. IBUPROFEN [Concomitant]
     Active Substance: IBUPROFEN
     Indication: Headache
     Dosage: 400 MG, AS NEEDED (AS NEEDED BY MOUTH)
     Route: 048

REACTIONS (2)
  - Dysgeusia [Not Recovered/Not Resolved]
  - Product taste abnormal [Not Recovered/Not Resolved]

NARRATIVE: CASE EVENT DATE: 20220510
